FAERS Safety Report 10012445 (Version 2)
Quarter: 2014Q2

REPORT INFORMATION
  Report Type: Spontaneous
  Country: US (occurrence: US)
  Receive Date: 20140312
  Receipt Date: 20140404
  Transmission Date: 20141212
  Serious: No
  Sender: FDA-Public Use
  Company Number: US-PFIZER INC-2014066896

PATIENT
  Age: 49 Year
  Sex: Male
  Weight: 102.04 kg

DRUGS (1)
  1. ARTHROTEC [Suspect]
     Indication: ARTHRITIS
     Dosage: UNK
     Route: 048
     Dates: start: 201402, end: 20140224

REACTIONS (2)
  - Diarrhoea [Unknown]
  - Nausea [Unknown]
